FAERS Safety Report 15885663 (Version 4)
Quarter: 2019Q2

REPORT INFORMATION
  Report Type: Report from Study
  Country: ES (occurrence: ES)
  Receive Date: 20190129
  Receipt Date: 20190424
  Transmission Date: 20190711
  Serious: Yes (Death, Hospitalization, Other)
  Sender: FDA-Public Use
  Company Number: ES-MYLANLABS-2019M1007603

PATIENT
  Age: 77 Year
  Sex: Female
  Weight: 70 kg

DRUGS (15)
  1. ENALAPRIL [Suspect]
     Active Substance: ENALAPRIL
     Indication: HYPERTENSION
     Dosage: UNK UNK, QD
     Route: 065
  2. DUODOPA [Suspect]
     Active Substance: CARBIDOPA\LEVODOPA
     Indication: PARKINSON^S DISEASE
     Dosage: UNK, (MORNING DOSE 12,5 ML CONTINUES DOSE 2,0 ML EXTRA DOSE 2,3 ML)
     Route: 050
     Dates: start: 20180130, end: 201805
  3. PARACETAMOL [Concomitant]
     Active Substance: ACETAMINOPHEN
     Indication: PRODUCT USED FOR UNKNOWN INDICATION
     Dosage: UNK, (OCCASIONALLY)
     Route: 065
  4. SERC (BETAHISTINE HYDROCHLORIDE) [Concomitant]
     Active Substance: BETAHISTINE HYDROCHLORIDE
     Indication: PRODUCT USED FOR UNKNOWN INDICATION
     Dosage: UNK, QD, (2 QD)
     Route: 065
  5. DUODOPA [Suspect]
     Active Substance: CARBIDOPA\LEVODOPA
     Dosage: UNK, (MORNING DOSE 11.0 ML CONTINUOUS DOSE 1.8 ML EXTRA DOSE 2.3 ML)
     Route: 050
     Dates: start: 20180525
  6. XADAGO [Concomitant]
     Active Substance: SAFINAMIDE MESYLATE
     Indication: PARKINSON^S DISEASE
     Dosage: 100 MILLIGRAM, QD
     Route: 048
     Dates: start: 20180423
  7. RIVOTRIL [Concomitant]
     Active Substance: CLONAZEPAM
     Indication: PRODUCT USED FOR UNKNOWN INDICATION
     Dosage: UNK, QD, (1 QD)
     Route: 065
  8. CITALOPRAM [Concomitant]
     Active Substance: CITALOPRAM HYDROBROMIDE
     Indication: PRODUCT USED FOR UNKNOWN INDICATION
     Dosage: UNK, QD, (1, QD)
     Route: 065
  9. DUODOPA [Suspect]
     Active Substance: CARBIDOPA\LEVODOPA
     Dosage: UNK, (MORNING DOSE: 10.5 ML)
     Route: 050
     Dates: start: 201805
  10. ASTONIN                            /00042702/ [Suspect]
     Active Substance: CYPROHEPTADINE HYDROCHLORIDE
     Indication: HYPERTENSION
     Dosage: UNK
     Route: 065
     Dates: start: 20180531
  11. QUETIAPINE. [Concomitant]
     Active Substance: QUETIAPINE
     Indication: PRODUCT USED FOR UNKNOWN INDICATION
     Dosage: 25 MILLIGRAM, QD
     Route: 048
  12. ADIRO [Concomitant]
     Active Substance: ASPIRIN
     Indication: PRODUCT USED FOR UNKNOWN INDICATION
     Dosage: UNK, QD, (1, QD)
     Route: 065
  13. OMEPRAZOL                          /00661201/ [Concomitant]
     Active Substance: OMEPRAZOLE
     Indication: PRODUCT USED FOR UNKNOWN INDICATION
     Dosage: UNK, QD, (1, QD)
     Route: 065
  14. LEVOGASTROL [Concomitant]
     Indication: PRODUCT USED FOR UNKNOWN INDICATION
     Dosage: UNK, (OCASIONALLY)
     Route: 065
  15. NEUPRO [Concomitant]
     Active Substance: ROTIGOTINE
     Indication: PARKINSON^S DISEASE
     Dosage: UNK, QD, (1, QD)
     Route: 062

REACTIONS (12)
  - Vomiting [Not Recovered/Not Resolved]
  - Post procedural complication [Unknown]
  - Death [Fatal]
  - Fall [Not Recovered/Not Resolved]
  - Epilepsy [Not Recovered/Not Resolved]
  - Dyskinesia [Recovered/Resolved]
  - Dizziness [Not Recovered/Not Resolved]
  - Meningioma benign [Not Recovered/Not Resolved]
  - Head injury [Recovered/Resolved]
  - Generalised tonic-clonic seizure [Recovering/Resolving]
  - Pneumoperitoneum [Recovered/Resolved]
  - Loss of consciousness [Not Recovered/Not Resolved]

NARRATIVE: CASE EVENT DATE: 2018
